FAERS Safety Report 5671616-X (Version None)
Quarter: 2008Q1

REPORT INFORMATION
  Report Type: 
  Country: None (occurrence: None)
  Receive Date: 20080313
  Receipt Date: 20080303
  Transmission Date: 20080703
  Serious: Yes (Hospitalization)
  Sender: FDA-Public Use
  Company Number: 100#08#2008-01132

PATIENT
  Age: 65 Year
  Sex: Male

DRUGS (2)
  1. LITHIUM CARBONATE [Suspect]
     Indication: BIPOLAR DISORDER
  2. HYDROCHLOROTHIAZIDE [Concomitant]

REACTIONS (14)
  - ANION GAP DECREASED [None]
  - ANTIPSYCHOTIC DRUG LEVEL ABOVE THERAPEUTIC [None]
  - BLOOD CALCIUM INCREASED [None]
  - BODY TEMPERATURE DECREASED [None]
  - DEPRESSED LEVEL OF CONSCIOUSNESS [None]
  - DYSARTHRIA [None]
  - GLASGOW COMA SCALE ABNORMAL [None]
  - HAEMODIALYSIS [None]
  - HEART RATE INCREASED [None]
  - INTENTIONAL OVERDOSE [None]
  - OSMOLAR GAP ABNORMAL [None]
  - RESPIRATORY RATE INCREASED [None]
  - THERAPEUTIC AGENT TOXICITY [None]
  - URINE OUTPUT INCREASED [None]
